FAERS Safety Report 14075844 (Version 2)
Quarter: 2017Q4

REPORT INFORMATION
  Report Type: Spontaneous
  Country: US (occurrence: US)
  Receive Date: 20171010
  Receipt Date: 20171025
  Transmission Date: 20180321
  Serious: No
  Sender: FDA-Public Use
  Company Number: US-MYLANLABS-2017M1007862

PATIENT
  Sex: Female

DRUGS (2)
  1. RISPERIDONE TABLETS, USP [Suspect]
     Active Substance: RISPERIDONE
     Indication: PRODUCT USED FOR UNKNOWN INDICATION
     Dosage: 1 MG, QD, EVERY MORNING
     Route: 048
     Dates: start: 2016
  2. RISPERIDONE TABLETS, USP [Suspect]
     Active Substance: RISPERIDONE
     Dosage: 2 MG, HS
     Route: 048
     Dates: start: 2016

REACTIONS (4)
  - Dystonia [Recovered/Resolved]
  - Drug intolerance [Recovered/Resolved]
  - Facial spasm [Recovered/Resolved]
  - Feeling abnormal [Recovered/Resolved]
